FAERS Safety Report 6531004-0 (Version None)
Quarter: 2010Q1

REPORT INFORMATION
  Report Type: 
  Country: None (occurrence: None)
  Receive Date: 20100108
  Receipt Date: 20090820
  Transmission Date: 20100710
  Serious: No
  Sender: FDA-Public Use
  Company Number: A0804601A

PATIENT
  Age: 75 Year
  Sex: Female

DRUGS (6)
  1. LOVAZA [Suspect]
     Indication: BLOOD CHOLESTEROL INCREASED
     Dosage: 2MG TWICE PER DAY
     Route: 048
     Dates: start: 20090101
  2. EPIDURAL [Suspect]
     Indication: SPINAL COLUMN STENOSIS
     Dates: start: 20090801, end: 20090801
  3. VITAMIN [Concomitant]
  4. LORAZEPAM [Concomitant]
  5. UNKNOWN STOMACH MEDICATION [Concomitant]
  6. QUINAPRIL [Concomitant]

REACTIONS (6)
  - BLOOD GLUCOSE INCREASED [None]
  - CONSTIPATION [None]
  - FAECES DISCOLOURED [None]
  - INCONTINENCE [None]
  - MICTURITION DISORDER [None]
  - URINARY INCONTINENCE [None]
